FAERS Safety Report 8130628-7 (Version None)
Quarter: 2012Q1

REPORT INFORMATION
  Report Type: 
  Country: None (occurrence: None)
  Receive Date: 20120213
  Receipt Date: 20120202
  Transmission Date: 20120608
  Serious: Yes (Hospitalization)
  Sender: FDA-Public Use
  Company Number: US-BIOGENIDEC-2012BI000042

PATIENT
  Age: 45 Year
  Sex: Female

DRUGS (2)
  1. TYSABRI [Suspect]
     Indication: MULTIPLE SCLEROSIS
     Route: 042
     Dates: start: 20111102, end: 20111130
  2. TYSABRI [Suspect]
     Route: 042
     Dates: start: 20120125

REACTIONS (6)
  - MULTIPLE SCLEROSIS [None]
  - DRUG INEFFECTIVE [None]
  - MALAISE [None]
  - VIRAEMIA [None]
  - URINARY TRACT INFECTION [None]
  - BACTERIAL SEPSIS [None]
